FAERS Safety Report 19087333 (Version 3)
Quarter: 2021Q3

REPORT INFORMATION
  Report Type: Report from Study
  Country: FR (occurrence: FR)
  Receive Date: 20210402
  Receipt Date: 20210728
  Transmission Date: 20211014
  Serious: Yes (Other)
  Sender: FDA-Public Use
  Company Number: FR-JNJFOC-20210343371

PATIENT
  Age: 13 Year
  Sex: Male
  Weight: 36.2 kg

DRUGS (9)
  1. AFTAGEL [LIDOCAINE HYDROCHLORIDE;ZINC SULFATE] [Concomitant]
     Indication: STOMATITIS
     Route: 065
     Dates: start: 20200921
  2. PAROEX [Concomitant]
     Active Substance: CHLORHEXIDINE GLUCONATE
     Indication: STOMATITIS
     Route: 065
     Dates: start: 20201005
  3. GAVISCON [CALCIUM CARBONATE;SODIUM ALGINATE;SODIUM BICARBONATE] [Concomitant]
     Active Substance: CALCIUM CARBONATE\SODIUM ALGINATE\SODIUM BICARBONATE
     Indication: ABDOMINAL PAIN UPPER
     Route: 065
     Dates: start: 20200911
  4. FOOD SUPPLEMENT [Concomitant]
     Indication: DECREASED APPETITE
     Route: 065
     Dates: start: 20201221
  5. BISEPTINE [BENZALKONIUM CHLORIDE;BENZYL ALCOHOL;CHLORHEXIDINE] [Concomitant]
     Indication: ONYCHOLYSIS
     Route: 065
     Dates: start: 20201217
  6. SEVELAMER [Concomitant]
     Active Substance: SEVELAMER
     Indication: HYPERPHOSPHATAEMIA
     Route: 065
     Dates: start: 20200928
  7. FORLAX [Concomitant]
     Active Substance: POLYETHYLENE GLYCOL 4000
     Indication: CONSTIPATION
     Route: 065
     Dates: start: 20201130
  8. VITAMIN A [RETINOL] [Concomitant]
     Active Substance: RETINOL
     Indication: DRY SKIN
     Route: 065
     Dates: start: 20201109
  9. ERDAFITINIB. [Suspect]
     Active Substance: ERDAFITINIB
     Indication: NEOPLASM
     Route: 048
     Dates: start: 20200907, end: 20210321

REACTIONS (1)
  - Tibia fracture [Recovered/Resolved]

NARRATIVE: CASE EVENT DATE: 20210321
